FAERS Safety Report 15111804 (Version 1)
Quarter: 2018Q3

REPORT INFORMATION
  Report Type: Spontaneous
  Country: GB (occurrence: GB)
  Receive Date: 20180705
  Receipt Date: 20180705
  Transmission Date: 20181010
  Serious: Yes (Other)
  Sender: FDA-Public Use
  Company Number: GB-PFIZER INC-2007331593

PATIENT
  Age: 42 Year
  Sex: Male

DRUGS (4)
  1. COLOMYCIN (COLISTIN) [Interacting]
     Active Substance: COLISTIN SULFATE
     Indication: PSEUDOMONAS INFECTION
     Dosage: 2 MEGAUNITS TDS
     Route: 042
     Dates: start: 200306
  2. DICLOFENAC SODIUM. [Suspect]
     Active Substance: DICLOFENAC SODIUM
     Route: 065
     Dates: start: 200306
  3. TOBRAMYCIN. [Interacting]
     Active Substance: TOBRAMYCIN
     Indication: PSEUDOMONAS INFECTION
     Dosage: 160 MG TDS (9.8 MG/KG/DAY)
     Route: 042
     Dates: start: 200306
  4. COTRIMOXAZOLE [Interacting]
     Active Substance: SULFAMETHOXAZOLE\TRIMETHOPRIM
     Indication: INFECTION
     Dosage: 1.44 G TWICE DAILY
     Route: 042
     Dates: start: 200306

REACTIONS (5)
  - Ataxia [Unknown]
  - Acute kidney injury [Unknown]
  - Dizziness [Unknown]
  - Tinnitus [Unknown]
  - Drug interaction [Unknown]

NARRATIVE: CASE EVENT DATE: 2003
